FAERS Safety Report 9732783 (Version 2)
Quarter: 2014Q1

REPORT INFORMATION
  Report Type: Spontaneous
  Country: IT (occurrence: IT)
  Receive Date: 20131204
  Receipt Date: 20140128
  Transmission Date: 20141002
  Serious: Yes (Hospitalization)
  Sender: FDA-Public Use
  Company Number: IT-WATSON-2013-22231

PATIENT
  Age: 59 Year
  Sex: Male

DRUGS (1)
  1. CIPROFLOXACIN HYDROCHLORIDE (UNKNOWN) [Suspect]
     Indication: DIVERTICULITIS
     Dosage: 500 MG/ TOTAL
     Route: 048
     Dates: start: 20131017, end: 20131017

REACTIONS (2)
  - Rash generalised [Recovering/Resolving]
  - Syncope [Recovering/Resolving]
